FAERS Safety Report 4611873-1 (Version None)
Quarter: 2005Q2

REPORT INFORMATION
  Report Type: 
  Country: None (occurrence: None)
  Receive Date: 20050308
  Receipt Date: 20041105
  Transmission Date: 20051028
  Serious: Yes (Other)
  Sender: FDA-Public Use
  Company Number: 2004UW22969

PATIENT
  Age: 67 Year
  Sex: Female
  Weight: 90.718 kg

DRUGS (3)
  1. CRESTOR [Suspect]
     Dosage: 10 MG PO
     Route: 048
  2. LOPID [Concomitant]
  3. MULTIPLE UNSPECIFIED MEDICATIONS [Concomitant]

REACTIONS (4)
  - HEADACHE [None]
  - NERVOUSNESS [None]
  - OEDEMA PERIPHERAL [None]
  - STOMACH DISCOMFORT [None]
